FAERS Safety Report 6134929-3 (Version None)
Quarter: 2009Q1

REPORT INFORMATION
  Report Type: 
  Country: None (occurrence: None)
  Receive Date: 20090327
  Receipt Date: 20090318
  Transmission Date: 20090719
  Serious: Yes (Other)
  Sender: FDA-Public Use
  Company Number: US-WATSON-2009-01869

PATIENT
  Age: 67 Year
  Sex: Male

DRUGS (2)
  1. FERRLECIT [Suspect]
     Indication: IRON DEFICIENCY ANAEMIA
     Dosage: 125 MG UNDILUTED SLOW IV PUSH DURING DIALYSIS SESSION
     Route: 042
     Dates: start: 20090112, end: 20090112
  2. FERRLECIT [Suspect]
     Dosage: 125 MG UNDILUTED SLOW IV PUSH DURING DIALYSIS SESSION
     Route: 042
     Dates: start: 20081020, end: 20081020

REACTIONS (7)
  - HEART RATE DECREASED [None]
  - HYPERHIDROSIS [None]
  - HYPOTENSION [None]
  - HYPOVENTILATION [None]
  - LOSS OF CONSCIOUSNESS [None]
  - UNRESPONSIVE TO STIMULI [None]
  - VOMITING [None]
